FAERS Safety Report 5689766-0 (Version None)
Quarter: 2008Q1

REPORT INFORMATION
  Report Type: 
  Country: None (occurrence: None)
  Receive Date: 20080328
  Receipt Date: 20080212
  Transmission Date: 20080703
  Serious: Yes (Other)
  Sender: FDA-Public Use
  Company Number: 2008EU000335

PATIENT
  Age: 8 Year

DRUGS (2)
  1. TACROLIMUS [Suspect]
     Indication: IMMUNOSUPPRESSION
     Dosage: 0.4 MG, BID
  2. MYCOPHENOLATE MOFETIL [Concomitant]

REACTIONS (3)
  - DRUG INTERACTION [None]
  - IMMUNOSUPPRESSANT DRUG LEVEL INCREASED [None]
  - PROCEDURAL SITE REACTION [None]
